FAERS Safety Report 6088234-4 (Version None)
Quarter: 2009Q1

REPORT INFORMATION
  Report Type: 
  Country: None (occurrence: None)
  Receive Date: 20090224
  Receipt Date: 20090123
  Transmission Date: 20090719
  Serious: No
  Sender: FDA-Public Use
  Company Number: US-BAYER-200910261BCC

PATIENT
  Age: 77 Year
  Sex: Male
  Weight: 99 kg

DRUGS (5)
  1. ALEVE [Suspect]
     Indication: MUSCULOSKELETAL PAIN
     Dosage: TOTAL DAILY DOSE: 440 MG  UNIT DOSE: 220 MG
     Dates: start: 20081101
  2. ALEVE [Suspect]
     Dosage: TOTAL DAILY DOSE: 880 MG  UNIT DOSE: 220 MG
  3. VICODIN [Concomitant]
  4. UNKNOWN BLOOD PRESSURE MEDICATION [Concomitant]
  5. LIPITOR [Concomitant]

REACTIONS (1)
  - MUSCULOSKELETAL PAIN [None]
